FAERS Safety Report 4710088-6 (Version None)
Quarter: 2005Q3

REPORT INFORMATION
  Report Type: 
  Country: None (occurrence: None)
  Receive Date: 20050706
  Receipt Date: 20050706
  Transmission Date: 20060218
  Serious: Yes (Life-Threatening)
  Sender: FDA-Public Use
  Company Number: None

PATIENT
  Age: 42 Year
  Sex: Female
  Weight: 93.3 kg

DRUGS (4)
  1. DILAUDID [Suspect]
     Indication: POST PROCEDURAL NAUSEA
     Dosage: 1 X DOSE IV
     Route: 042
     Dates: start: 20050607
  2. DILAUDID [Suspect]
     Indication: POST PROCEDURAL VOMITING
     Dosage: 1 X DOSE IV
     Route: 042
     Dates: start: 20050607
  3. PHENERGAN [Suspect]
     Indication: POST PROCEDURAL NAUSEA
     Dosage: X 1 DOSE IV
     Route: 042
     Dates: start: 20050607
  4. PHENERGAN [Suspect]
     Indication: POST PROCEDURAL VOMITING
     Dosage: X 1 DOSE IV
     Route: 042
     Dates: start: 20050607

REACTIONS (1)
  - RESPIRATORY DEPRESSION [None]
